FAERS Safety Report 5568912-3 (Version None)
Quarter: 2007Q4

REPORT INFORMATION
  Report Type: 
  Country: None (occurrence: None)
  Receive Date: 20071220
  Receipt Date: 20070419
  Transmission Date: 20080405
  Serious: No
  Sender: FDA-Public Use
  Company Number: A0643672A

PATIENT
  Age: 84 Year
  Sex: Male

DRUGS (11)
  1. AVODART [Suspect]
     Indication: MICTURITION DISORDER
     Dosage: .5MG PER DAY
     Route: 048
     Dates: start: 20060301
  2. NORVASC [Concomitant]
  3. CELEBREX [Concomitant]
  4. FLOMAX [Concomitant]
  5. PLAVIX [Concomitant]
  6. COZAAR [Concomitant]
  7. ASPIRIN [Concomitant]
  8. CLONIDINE [Concomitant]
  9. LISINOPRIL [Concomitant]
  10. LIPITOR [Concomitant]
  11. TOPROL-XL [Concomitant]

REACTIONS (1)
  - BREAST TENDERNESS [None]
